FAERS Safety Report 5818274-9 (Version None)
Quarter: 2008Q3

REPORT INFORMATION
  Report Type: 
  Country: None (occurrence: None)
  Receive Date: 20080722
  Receipt Date: 20080710
  Transmission Date: 20090109
  Serious: Yes (Disabling)
  Sender: FDA-Public Use
  Company Number: CA-PFIZER INC-2008042267

PATIENT
  Sex: Female
  Weight: 70 kg

DRUGS (9)
  1. SUTENT [Suspect]
     Indication: BONE NEOPLASM MALIGNANT
     Route: 048
  2. SUTENT [Suspect]
  3. ELTROXIN [Concomitant]
     Route: 048
  4. LIPITOR [Concomitant]
     Route: 048
  5. NORVASC [Concomitant]
     Route: 048
  6. NOVASEN [Concomitant]
     Route: 048
  7. RABEPRAZOLE SODIUM [Concomitant]
     Route: 048
  8. LISINOPRIL [Concomitant]
     Route: 048
  9. HYDROMORPHONE HYDROCHLORIDE [Concomitant]

REACTIONS (1)
  - DEAFNESS [None]
